FAERS Safety Report 7254552-7 (Version None)
Quarter: 2011Q1

REPORT INFORMATION
  Report Type: 
  Country: None (occurrence: None)
  Receive Date: 20110129
  Receipt Date: 20100426
  Transmission Date: 20110831
  Serious: No
  Sender: FDA-Public Use
  Company Number: US-ABBOTT-10P-163-0641553-00

PATIENT
  Sex: Female
  Weight: 106.69 kg

DRUGS (3)
  1. METFORMIN [Concomitant]
     Indication: DIABETES MELLITUS
     Route: 048
  2. HUMIRA [Suspect]
     Indication: PSORIASIS
     Route: 058
     Dates: start: 20080101
  3. HUMIRA [Suspect]
     Indication: PSORIATIC ARTHROPATHY

REACTIONS (8)
  - FLUSHING [None]
  - NASAL CONGESTION [None]
  - LARYNGITIS [None]
  - LEUKOPLAKIA ORAL [None]
  - FEELING HOT [None]
  - COUGH [None]
  - PALPITATIONS [None]
  - OROPHARYNGEAL PAIN [None]
